FAERS Safety Report 19865525 (Version 1)
Quarter: 2021Q3

REPORT INFORMATION
  Report Type: Spontaneous
  Country: US (occurrence: US)
  Receive Date: 20210920
  Receipt Date: 20210920
  Transmission Date: 20211014
  Serious: No
  Sender: FDA-Public Use
  Company Number: None

PATIENT
  Age: 71 Year
  Sex: Female

DRUGS (1)
  1. TACROLIMUS CAP 1 MG [Suspect]
     Active Substance: TACROLIMUS
     Route: 048
     Dates: start: 202101

REACTIONS (1)
  - Sepsis [None]

NARRATIVE: CASE EVENT DATE: 20210701
